FAERS Safety Report 5767560-X (Version None)
Quarter: 2008Q2

REPORT INFORMATION
  Report Type: 
  Country: None (occurrence: None)
  Receive Date: 20080612
  Receipt Date: 20080602
  Transmission Date: 20081010
  Serious: Yes (Life-Threatening)
  Sender: FDA-Public Use
  Company Number: AU-ROCHE-568051

PATIENT
  Sex: Male
  Weight: 110 kg

DRUGS (8)
  1. CEFTRIAXONE [Suspect]
     Indication: DRUG USE FOR UNKNOWN INDICATION
     Route: 042
     Dates: start: 20080118
  2. CLEXANE [Concomitant]
     Indication: PROPHYLAXIS
     Route: 058
  3. LOSEC I.V. [Concomitant]
  4. PANAFCORTELONE [Concomitant]
  5. SPIRIVA [Concomitant]
  6. SYMBICORT [Concomitant]
     Dosage: DRUG REPORTED AS SYMBICORT TURBOHALER 400/12. ROUTE REPORTED AS 2 DOSE UNSPECIFIED.
     Route: 055
  7. SYMBICORT [Concomitant]
     Dosage: DRUG REPORTED AS SYMBICORT TURBOHALER 400/12. ROUTE REPORTED AS 2 DOSE UNSPECIFIED.
     Route: 055
  8. VENTOLIN [Concomitant]

REACTIONS (1)
  - ANAPHYLACTIC REACTION [None]
